FAERS Safety Report 20784420 (Version 6)
Quarter: 2022Q2

REPORT INFORMATION
  Report Type: Spontaneous
  Country: US (occurrence: US)
  Receive Date: 20220504
  Receipt Date: 20220610
  Transmission Date: 20220720
  Serious: No
  Sender: FDA-Public Use
  Company Number: US-PFIZER INC-202200634783

PATIENT
  Age: 65 Year
  Sex: Female
  Weight: 64.853 kg

DRUGS (22)
  1. PAXLOVID [Suspect]
     Active Substance: NIRMATRELVIR\RITONAVIR
     Indication: COVID-19 treatment
     Dosage: (PF-07321332 150/RITONAVIR 100)
     Route: 048
     Dates: start: 20220416, end: 20220420
  2. LISINOPRIL [Concomitant]
     Active Substance: LISINOPRIL
     Dosage: UNK, 1X/DAY
     Route: 048
     Dates: start: 200506, end: 202204
  3. SERTRALINE [Concomitant]
     Active Substance: SERTRALINE HYDROCHLORIDE
     Dosage: 100 MG, DAILY
     Route: 048
     Dates: start: 20210628, end: 20220427
  4. LEVOTHYROXINE [Concomitant]
     Active Substance: LEVOTHYROXINE
     Dosage: 88 UG, DAILY (TAKE 1 TABLET BY MOUTH EVERY DAY BEFORE BREAKFAST)
     Route: 048
     Dates: start: 20211110, end: 202204
  5. LIPITOR [Concomitant]
     Active Substance: ATORVASTATIN CALCIUM
     Dosage: 10 MG, DAILY (TAKE 1 TABLET BY MOUTH EVERY DAY)
     Route: 048
     Dates: start: 20220127, end: 202204
  6. CHONDROITIN SULFATE (BOVINE)\DIMETHYL SULFONE\GLUCOSAMINE SULFATE [Concomitant]
     Active Substance: CHONDROITIN SULFATE (BOVINE)\DIMETHYL SULFONE\GLUCOSAMINE SULFATE
     Dosage: UNK, 2X/DAY
     Route: 048
     Dates: start: 200505, end: 202204
  7. ALIGN [Concomitant]
     Active Substance: BIFIDOBACTERIUM LONGUM SUBSP. INFANTIS
     Dosage: 4 MG, DAILY
     Route: 048
     Dates: start: 202005, end: 202204
  8. ACTONEL [Concomitant]
     Active Substance: RISEDRONATE SODIUM
     Dosage: 150 MG, MONTHLY
     Route: 048
     Dates: start: 20220503
  9. ALBUTEROL SULFATE [Concomitant]
     Active Substance: ALBUTEROL SULFATE
     Dosage: UNK, EVERY 4 HRS (INHALE 2 PUFFS BY MOUTH EVERY 4 HOURS AS NEEDED)
     Route: 055
     Dates: start: 20211123
  10. FLUTICASONE [Concomitant]
     Active Substance: FLUTICASONE
     Dosage: UNK, DAILY (1 SPRAY BY NASAL ROUTE DAILY)
     Route: 055
     Dates: start: 20200124, end: 20200722
  11. PRINIVIL [Concomitant]
     Active Substance: LISINOPRIL
     Dosage: 20 MG, DAILY
     Route: 048
     Dates: start: 20220322
  12. ZOLOFT [Concomitant]
     Active Substance: SERTRALINE HYDROCHLORIDE
     Dosage: 100 MG, DAILY (1 TABLET BY MOUTH EVERY DAY)
     Route: 048
     Dates: start: 20210628
  13. SYNTHROID [Concomitant]
     Active Substance: LEVOTHYROXINE SODIUM
     Dosage: 88 UG, DAILY (SIG: TAKE 1 TABLET BY MOUTH EVERY DAY BEFORE BREAKFAST)
     Dates: start: 20211110
  14. PROVENTIL HFA [Concomitant]
     Active Substance: ALBUTEROL SULFATE
     Dosage: INHALE 2 PUFFS BY MOUTH EVERY 4 HOURS AS NEEDED. SHAKE WELL BEFORE EACH USE
     Dates: start: 20211123
  15. VENTOLIN HFA [Concomitant]
     Active Substance: ALBUTEROL SULFATE
     Dosage: INHALE 2 PUFFS BY MOUTH EVERY 4 HOURS AS NEEDED. SHAKE WELL BEFORE EACH USE
     Dates: start: 20211123
  16. ZESTRIL [Concomitant]
     Active Substance: LISINOPRIL
     Dosage: 20 MG, DAILY (22MAR2022)
     Dates: start: 20220322
  17. OMEGA-3 FATTY ACIDS [Concomitant]
     Active Substance: OMEGA-3 FATTY ACIDS
     Dosage: 2 G
     Route: 048
  18. ESTRING [Concomitant]
     Active Substance: ESTRADIOL
     Dosage: UNK, EVERY 3 MONTHS
     Route: 067
     Dates: start: 20151105
  19. CALCIUM CITRATE [Concomitant]
     Active Substance: CALCIUM CITRATE
     Dosage: 1 DF, 1X/DAY (UNK, 1X/DAY (TAKE 1 TABLET BY MOUTH DAILY)
     Route: 048
  20. CLARITIN [Concomitant]
     Active Substance: LORATADINE
     Dosage: 10 MG, DAILY
     Route: 048
     Dates: start: 20070601
  21. PROAIR HFA [Concomitant]
     Active Substance: ALBUTEROL SULFATE
     Dosage: UNK, EVERY 4 HRS (INHALE 2 PUFFS BY MOUTH EVERY 4 HOURS AS NEEDED. SHAKE WELL BEFORE EACH USE)
     Route: 048
     Dates: start: 20211123
  22. LEVOTHROID [Concomitant]
     Active Substance: LEVOTHYROXINE SODIUM
     Dosage: 1 DF, 1X/DAY (UNK, 1X/DAY (TAKE 1 TABLET BY MOUTH EVERY DAY BEFORE BREAKFAST)
     Route: 048
     Dates: start: 20211110

REACTIONS (2)
  - COVID-19 [Recovered/Resolved]
  - Disease recurrence [Recovered/Resolved]

NARRATIVE: CASE EVENT DATE: 20220426
